FAERS Safety Report 9747785 (Version 2)
Quarter: 2013Q4

REPORT INFORMATION
  Report Type: Spontaneous
  Country: DE (occurrence: DE)
  Receive Date: 20131212
  Receipt Date: 20131212
  Transmission Date: 20140711
  Serious: Yes (Death)
  Sender: FDA-Public Use
  Company Number: DE-ROCHE-1308386

PATIENT
  Age: 63 Year
  Sex: Male

DRUGS (3)
  1. AVASTIN [Suspect]
     Indication: COLORECTAL CANCER
     Dosage: LAST DOSE RECEIVED PRIOR TO SAE ON 19/DEC/2011
     Route: 042
     Dates: start: 20111024
  2. CAPECITABINE [Suspect]
     Indication: COLORECTAL CANCER
     Dosage: LAST DOSE RECEIVED PRIOR TO SAE ON 19/DEC/2011
     Route: 048
     Dates: start: 20110926
  3. OXALIPLATIN [Suspect]
     Indication: COLORECTAL CANCER
     Dosage: LAST DOSE RECEIVED PRIOR TO SAE ON 19/DEC/2011
     Route: 042
     Dates: start: 20110926

REACTIONS (2)
  - Haemorrhage [Fatal]
  - Sudden death [Fatal]
